FAERS Safety Report 23477793 (Version 1)
Quarter: 2024Q1

REPORT INFORMATION
  Report Type: Report from Study
  Country: US (occurrence: US)
  Receive Date: 20240204
  Receipt Date: 20240204
  Transmission Date: 20240410
  Serious: No
  Sender: FDA-Public Use
  Company Number: US-EXELIXIS-CABO-23066758

PATIENT
  Age: 75 Year
  Sex: Female

DRUGS (6)
  1. CABOMETYX [Suspect]
     Active Substance: CABOZANTINIB S-MALATE
     Indication: Renal cell carcinoma
     Dosage: 60 MG, QD
     Dates: start: 20230617
  2. AMLODIPINE [Concomitant]
     Active Substance: AMLODIPINE BESYLATE
  3. NORCO [Concomitant]
     Active Substance: ACETAMINOPHEN\HYDROCODONE BITARTRATE
  4. LOSARTAN [Concomitant]
     Active Substance: LOSARTAN
  5. METOPROLOL [Concomitant]
     Active Substance: METOPROLOL
  6. POTASSIUM [Concomitant]
     Active Substance: POTASSIUM

REACTIONS (6)
  - Skin discolouration [Unknown]
  - Lethargy [Recovering/Resolving]
  - Decreased appetite [Recovering/Resolving]
  - Diarrhoea [Unknown]
  - Weight decreased [Unknown]
  - White blood cell count decreased [Unknown]

NARRATIVE: CASE EVENT DATE: 20230802
